FAERS Safety Report 6501341-4 (Version None)
Quarter: 2009Q4

REPORT INFORMATION
  Report Type: 
  Country: None (occurrence: None)
  Receive Date: 20091127
  Receipt Date: 20081124
  Transmission Date: 20100525
  Serious: Yes (Other)
  Sender: FDA-Public Use
  Company Number: WAES 0805USA02818

PATIENT
  Sex: Female
  Weight: 58.0604 kg

DRUGS (1)
  1. FOSAMAX [Suspect]
     Dosage: /PO
     Route: 048
     Dates: start: 20050601

REACTIONS (3)
  - CONGESTIVE CARDIOMYOPATHY [None]
  - GINGIVAL DISORDER [None]
  - OSTEONECROSIS [None]
